FAERS Safety Report 10374973 (Version 1)
Quarter: 2014Q3

REPORT INFORMATION
  Report Type: Spontaneous
  Country: US (occurrence: US)
  Receive Date: 20140811
  Receipt Date: 20140811
  Transmission Date: 20150326
  Serious: Yes (Other)
  Sender: FDA-Public Use
  Company Number: US-JNJFOC-20140800135

PATIENT
  Sex: Female
  Weight: 72.58 kg

DRUGS (5)
  1. PAMPRIN [Concomitant]
     Active Substance: IBUPROFEN
     Route: 065
  2. MIDOL NOS [Concomitant]
     Route: 065
  3. TYLENOL [Concomitant]
     Active Substance: ACETAMINOPHEN
     Route: 065
  4. ORTHO EVRA [Suspect]
     Active Substance: ETHINYL ESTRADIOL\NORELGESTROMIN
     Indication: MENSTRUATION IRREGULAR
     Route: 062
  5. IBUPROFEN. [Concomitant]
     Active Substance: IBUPROFEN
     Route: 065

REACTIONS (1)
  - High frequency ablation [Unknown]
